FAERS Safety Report 9662817 (Version 1)
Quarter: 2013Q4

REPORT INFORMATION
  Report Type: Spontaneous
  Country: US (occurrence: US)
  Receive Date: 20131031
  Receipt Date: 20131031
  Transmission Date: 20140711
  Serious: No
  Sender: FDA-Public Use
  Company Number: US-PURDUE-USA-2011-0074732

PATIENT
  Sex: Female

DRUGS (1)
  1. OXYCONTIN (NDA 22-272) [Suspect]
     Indication: ARTHRALGIA
     Dosage: 120 MG, TID
     Dates: end: 201106

REACTIONS (5)
  - Fall [Unknown]
  - Balance disorder [Unknown]
  - Tinnitus [Unknown]
  - Rash generalised [Unknown]
  - Somnolence [Unknown]
